FAERS Safety Report 22253408 (Version 1)
Quarter: 2023Q2

REPORT INFORMATION
  Report Type: Spontaneous
  Country: CZ (occurrence: CZ)
  Receive Date: 20230426
  Receipt Date: 20230426
  Transmission Date: 20230721
  Serious: Yes (Life-Threatening, Hospitalization, Disabling, Other)
  Sender: FDA-Public Use
  Company Number: None

PATIENT
  Age: 70 Year
  Sex: Male
  Weight: 72 kg

DRUGS (4)
  1. KEYTRUDA [Suspect]
     Active Substance: PEMBROLIZUMAB
     Indication: Malignant neoplasm of renal pelvis
     Dosage: 200 MILLIGRAM, Q3W
     Route: 042
     Dates: start: 20230210, end: 20230322
  2. TORECAN [Concomitant]
     Active Substance: THIETHYLPERAZINE MALATE
     Dosage: 6.5 MILLIGRAM, Q8H
  3. PREDNISONE [Concomitant]
     Active Substance: PREDNISONE
     Dosage: 2-0-0 AND WHEN NAUSEATED
     Route: 048
  4. FENTALIS [FENTANYL] [Concomitant]
     Dosage: 50 MCG/HOUR ON SATURDAY 1.4.2023
     Dates: start: 20230401

REACTIONS (5)
  - Acute kidney injury [Not Recovered/Not Resolved]
  - Acute kidney injury [Not Recovered/Not Resolved]
  - Vomiting [Not Recovered/Not Resolved]
  - Nausea [Not Recovered/Not Resolved]
  - Fatigue [Not Recovered/Not Resolved]

NARRATIVE: CASE EVENT DATE: 20230403
